FAERS Safety Report 16288775 (Version 1)
Quarter: 2019Q2

REPORT INFORMATION
  Report Type: Spontaneous
  Country: CN (occurrence: CN)
  Receive Date: 20190509
  Receipt Date: 20190509
  Transmission Date: 20190711
  Serious: Yes (Hospitalization, Other)
  Sender: FDA-Public Use
  Company Number: CN-BAXTER-2019BAX009136

PATIENT
  Age: 39 Year
  Sex: Female
  Weight: 47.5 kg

DRUGS (4)
  1. 0.9% SODIUM CHLORIDE INJECTION [Suspect]
     Active Substance: SODIUM CHLORIDE
     Indication: MEDICATION DILUTION
     Dosage: WITH CYCLOPHOSPHAMIDE FOR INJECTION 0.8 GRAM
     Route: 041
     Dates: start: 20190418, end: 20190418
  2. ENDOXAN [Suspect]
     Active Substance: CYCLOPHOSPHAMIDE
     Indication: BREAST CANCER FEMALE
     Dosage: WITH 0.9% SODIUM CHLORIDE 100 ML
     Route: 041
     Dates: start: 20190418, end: 20190418
  3. PHARMORUBICIN RD [Suspect]
     Active Substance: EPIRUBICIN
     Indication: BREAST CANCER FEMALE
     Dosage: WITH 5% GLUCOSE 100 ML
     Route: 041
     Dates: start: 20190418, end: 20190418
  4. 5% GLUCOSE  INJECTION [Suspect]
     Active Substance: DEXTROSE
     Indication: MEDICATION DILUTION
     Dosage: WITH EPIRUBICIN FOR INJECTION 130 MG
     Route: 041
     Dates: start: 20190418, end: 20190418

REACTIONS (2)
  - Leukopenia [Unknown]
  - Bone marrow failure [Unknown]

NARRATIVE: CASE EVENT DATE: 20190425
